FAERS Safety Report 5422569-0 (Version None)
Quarter: 2007Q3

REPORT INFORMATION
  Report Type: 
  Country: None (occurrence: None)
  Receive Date: 20070822
  Receipt Date: 20070808
  Transmission Date: 20080115
  Serious: No
  Sender: FDA-Public Use
  Company Number: US-ELI_LILLY_AND_COMPANY-US200707003075

PATIENT
  Age: 73 Year
  Sex: Female

DRUGS (11)
  1. FORTEO [Suspect]
     Indication: OSTEOPOROSIS
     Dosage: UNK, UNK
     Dates: start: 20070412
  2. SEREVENT [Concomitant]
     Indication: ASTHMA
  3. TAGAMET [Concomitant]
     Indication: GASTROOESOPHAGEAL REFLUX DISEASE
  4. LODINE [Concomitant]
     Indication: ARTHRITIS
  5. TRIAMTERENE [Concomitant]
     Indication: DIURETIC THERAPY
  6. LOTENSIN [Concomitant]
     Indication: ARTHRITIS
  7. VERAPAMIL [Concomitant]
     Indication: BLOOD PRESSURE
  8. SINGULAIR [Concomitant]
     Indication: ASTHMA
  9. LIPITOR [Concomitant]
     Indication: BLOOD CHOLESTEROL
  10. ASPIRIN [Concomitant]
  11. CALCIUM W/VITAMIN D NOS [Concomitant]

REACTIONS (4)
  - ACTIVITIES OF DAILY LIVING IMPAIRED [None]
  - INTERVERTEBRAL DISC PROTRUSION [None]
  - NECK PAIN [None]
  - PAIN IN EXTREMITY [None]
